FAERS Safety Report 22268278 (Version 1)
Quarter: 2023Q2

REPORT INFORMATION
  Report Type: Spontaneous
  Country: US (occurrence: US)
  Receive Date: 20230430
  Receipt Date: 20230430
  Transmission Date: 20230722
  Serious: No
  Sender: FDA-Public Use
  Company Number: US-SA-SAC20230425000791

PATIENT
  Sex: Female
  Weight: 59.87 kg

DRUGS (6)
  1. DUPIXENT [Suspect]
     Active Substance: DUPILUMAB
     Indication: Dermatitis atopic
     Dosage: 300MG, QOW
     Route: 058
  2. DESONIDE [Concomitant]
     Active Substance: DESONIDE
     Dosage: UNK
  3. EUCRISA [Concomitant]
     Active Substance: CRISABOROLE
     Dosage: UNK
  4. SYMBICORT [Concomitant]
     Active Substance: BUDESONIDE\FORMOTEROL FUMARATE DIHYDRATE
     Dosage: UNK
  5. SINGULAIR [Concomitant]
     Active Substance: MONTELUKAST SODIUM
     Dosage: UNK
  6. DEVICE [Concomitant]
     Active Substance: DEVICE
     Dosage: UNK

REACTIONS (1)
  - Rash [Unknown]
